FAERS Safety Report 5253116-4 (Version None)
Quarter: 2007Q1

REPORT INFORMATION
  Report Type: 
  Country: None (occurrence: None)
  Receive Date: 20070301
  Receipt Date: 20070227
  Transmission Date: 20070707
  Serious: Yes (Other)
  Sender: FDA-Public Use
  Company Number: CA-GLAXOSMITHKLINE-A0641198A

PATIENT
  Sex: Male

DRUGS (3)
  1. AVANDIA [Suspect]
  2. SULFONYLUREA AGENT [Concomitant]
  3. METFORMIN HCL [Concomitant]

REACTIONS (2)
  - CONVULSION [None]
  - HYPOGLYCAEMIA [None]
